FAERS Safety Report 19972273 (Version 1)
Quarter: 2021Q4

REPORT INFORMATION
  Report Type: Spontaneous
  Country: US (occurrence: US)
  Receive Date: 20211018
  Receipt Date: 20211018
  Transmission Date: 20220304
  Serious: No
  Sender: FDA-Public Use
  Company Number: None

PATIENT
  Sex: Female

DRUGS (1)
  1. OXACILLIN SODIUM [Suspect]
     Active Substance: OXACILLIN SODIUM
     Indication: Bacteraemia
     Dosage: ?          OTHER STRENGTH:2GM/20ML;
     Route: 042
     Dates: start: 20210916

REACTIONS (3)
  - Rash [None]
  - Dyspnoea [None]
  - Heart rate increased [None]
